FAERS Safety Report 13726090 (Version 1)
Quarter: 2017Q3

REPORT INFORMATION
  Report Type: Spontaneous
  Country: JP (occurrence: JP)
  Receive Date: 20170706
  Receipt Date: 20170706
  Transmission Date: 20171127
  Serious: Yes (Life-Threatening, Hospitalization, Other)
  Sender: FDA-Public Use
  Company Number: JP-JUBILANT CADISTA PHARMACEUTICALS-2017JUB00236

PATIENT
  Age: 20 Year
  Sex: Female

DRUGS (3)
  1. LAMOTRIGINE. [Suspect]
     Active Substance: LAMOTRIGINE
     Indication: AFFECTIVE DISORDER
     Dosage: 25 MG, EVERY 48 HOURS
     Route: 065
  2. SODIUM VALPROATE [Suspect]
     Active Substance: VALPROATE SODIUM
     Indication: AFFECTIVE DISORDER
     Dosage: 800 MG, 1X/DAY
     Route: 065
  3. ARIPIPRAZOLE. [Concomitant]
     Active Substance: ARIPIPRAZOLE
     Indication: PSYCHOTIC DISORDER
     Dosage: 24 MG, 1X/DAY
     Route: 065

REACTIONS (4)
  - Acute respiratory distress syndrome [Recovered/Resolved]
  - Hepatic function abnormal [Unknown]
  - Disseminated intravascular coagulation [Recovered/Resolved]
  - Drug interaction [Recovered/Resolved]
